FAERS Safety Report 16794718 (Version 2)
Quarter: 2020Q1

REPORT INFORMATION
  Report Type: Spontaneous
  Country: US (occurrence: US)
  Receive Date: 20190911
  Receipt Date: 20200305
  Transmission Date: 20200409
  Serious: No
  Sender: FDA-Public Use
  Company Number: US-PFIZER INC-2014112259

PATIENT
  Age: 68 Year
  Sex: Female
  Weight: 132.9 kg

DRUGS (26)
  1. LIPITOR [Concomitant]
     Active Substance: ATORVASTATIN CALCIUM
     Dosage: 20 MG, 1X/DAY(AT BED TIME)
     Route: 048
  2. MYCOLOG [Concomitant]
     Active Substance: GRAMICIDIN\NEOMYCIN SULFATE\NYSTATIN\TRIAMCINOLONE ACETONIDE
     Dosage: UNK, 2X/DAY
  3. DILACOR XR [Concomitant]
     Active Substance: DILTIAZEM HYDROCHLORIDE
     Dosage: 240 MG, DAILY
     Route: 048
  4. BAYER [Concomitant]
     Active Substance: ASPIRIN
     Dosage: 325 MG, DAILY (TAKE 1 TAB BY MOUTH DAILY)
     Route: 048
  5. SKELAXIN [Suspect]
     Active Substance: METAXALONE
     Indication: FIBROMYALGIA
     Dosage: 800 MG, TWICE A DAY
     Route: 048
  6. SKELAXIN [Suspect]
     Active Substance: METAXALONE
     Dosage: 800 MG, THRICE A DAY
     Route: 048
  7. PROVERA [Concomitant]
     Active Substance: MEDROXYPROGESTERONE ACETATE
     Dosage: 2.5 MG, DAILY
     Route: 048
  8. VIIBRYD [Concomitant]
     Active Substance: VILAZODONE HYDROCHLORIDE
     Dosage: TAKE 0.5-1 TABS BY MOUTH DAILY
     Route: 048
  9. CORTISPORIN [Concomitant]
     Active Substance: BACITRACIN ZINC\HYDROCORTISONE\NEOMYCIN SULFATE\POLYMYXIN B SULFATE
     Dosage: 8 DF, 4X/DAY(4 DROPS IN BOTH EARS 4 TIMES DAILY)
  10. LASIX [Concomitant]
     Active Substance: FUROSEMIDE
     Dosage: 20 MG, 2X/DAY
     Route: 048
  11. LYRICA [Suspect]
     Active Substance: PREGABALIN
     Indication: FIBROMYALGIA
     Dosage: 225 MG, TWICE A DAY (TAKE 1 CAP BY MOUTH EVERY 12 HOURS)
     Route: 048
  12. KENALOG [Concomitant]
     Active Substance: TRIAMCINOLONE ACETONIDE
     Dosage: UNK, 2X/DAY
  13. CYMBALTA [Concomitant]
     Active Substance: DULOXETINE HYDROCHLORIDE
     Dosage: 60 MG, DAILY
     Route: 048
  14. ZYRTEC [Concomitant]
     Active Substance: CETIRIZINE HYDROCHLORIDE
     Dosage: 10 MG, DAILY
     Route: 048
  15. FLONASE [Concomitant]
     Active Substance: FLUTICASONE PROPIONATE
     Dosage: 2 SPRAYS IN EACH NOSTRIL DAILY
     Route: 045
     Dates: start: 20140122
  16. PLAQUENIL [Concomitant]
     Active Substance: HYDROXYCHLOROQUINE SULFATE
     Dosage: 200 MG, 2X/DAY
     Route: 048
  17. ESTRACE [Concomitant]
     Active Substance: ESTRADIOL
     Dosage: 0.5 MG, DAILY
     Route: 048
  18. ZYRTEC D 12 HOUR [Concomitant]
     Active Substance: CETIRIZINE HYDROCHLORIDE\PSEUDOEPHEDRINE HYDROCHLORIDE
     Indication: DRUG HYPERSENSITIVITY
     Dosage: 1 DF, 1X/DAY(1 TIME DAILY -AS NEEDED)
     Route: 048
  19. PRECOSE [Concomitant]
     Active Substance: ACARBOSE
     Dosage: 25 MG, 3X/DAY (TAKE WITH FIRST BITE OF THE MEAL)
     Route: 048
  20. CELEBREX [Concomitant]
     Active Substance: CELECOXIB
     Dosage: 200 MG, DAILY
     Route: 048
  21. ZANTAC [Concomitant]
     Active Substance: RANITIDINE HYDROCHLORIDE
     Dosage: 150 MG, 1X/DAY(TAKE 1 TAB BY MOUTH DAILY AT BEDTIME)
     Route: 048
  22. CALCIUM 500+D [Concomitant]
     Active Substance: CALCIUM\VITAMIN D
     Dosage: 1 DF, DAILY (500 MG (1, 250 MG) -200 UNIT ORAL TABLET [TAKING],~TAKE 1 TAB BY MOUTH DAILY)
     Route: 048
  23. ULTRAM ER [Concomitant]
     Active Substance: TRAMADOL HYDROCHLORIDE
     Dosage: UNK, 4X/DAY (TAKE 1-2 TABS BY MOUTH 4 TIMES DAILY)
  24. GLUCOPHAGE [Concomitant]
     Active Substance: METFORMIN HYDROCHLORIDE
     Dosage: 1500 MG, 1X/DAY(TAKE 3 TABS BY MOUTH DAILY WITH SUPPER)
     Route: 048
  25. VITAMIN B12 [Concomitant]
     Active Substance: CYANOCOBALAMIN
     Dosage: 1000 UG, DAILY
     Route: 048
  26. DESYREL [Concomitant]
     Active Substance: TRAZODONE HYDROCHLORIDE
     Dosage: 100 MG, 1X/DAY(TAKE 1 TAB BY MOUTH DAILY AT BEDTIME)
     Route: 048

REACTIONS (1)
  - Dyspnoea [Unknown]
